FAERS Safety Report 10742590 (Version 1)
Quarter: 2015Q1

REPORT INFORMATION
  Report Type: Spontaneous
  Country: US (occurrence: None)
  Receive Date: 20150123
  Receipt Date: 20150123
  Transmission Date: 20150721
  Serious: Yes (Other)
  Sender: FDA-Public Use
  Company Number: None

PATIENT
  Age: 35 Year
  Sex: Male
  Weight: 90.72 kg

DRUGS (1)
  1. PROPECIA [Suspect]
     Active Substance: FINASTERIDE
     Indication: ALOPECIA
     Dates: start: 20040101, end: 20120301

REACTIONS (5)
  - Sensory loss [None]
  - Libido decreased [None]
  - Sexual dysfunction [None]
  - Cognitive disorder [None]
  - Fatigue [None]

NARRATIVE: CASE EVENT DATE: 20120301
